FAERS Safety Report 6800753-9 (Version None)
Quarter: 2010Q2

REPORT INFORMATION
  Report Type: 
  Country: None (occurrence: None)
  Receive Date: 20100629
  Receipt Date: 20100617
  Transmission Date: 20101027
  Serious: Yes (Hospitalization)
  Sender: FDA-Public Use
  Company Number: US-JNJFOC-20091009126

PATIENT
  Sex: Female
  Weight: 52.7 kg

DRUGS (9)
  1. SIMPONI [Suspect]
     Indication: RHEUMATOID ARTHRITIS
     Route: 058
  2. PREDNISONE [Concomitant]
  3. IBUPROFEN [Concomitant]
  4. IBUPROFEN [Concomitant]
  5. VICODIN [Concomitant]
     Route: 048
  6. ZOFRAN [Concomitant]
     Route: 048
  7. METHOTREXATE [Concomitant]
     Route: 042
  8. METOPROLOL TARTRATE [Concomitant]
     Route: 048
  9. PRILOSEC [Concomitant]
     Route: 048

REACTIONS (2)
  - IRON DEFICIENCY ANAEMIA [None]
  - STRESS CARDIOMYOPATHY [None]
